FAERS Safety Report 6368474-7 (Version None)
Quarter: 2009Q3

REPORT INFORMATION
  Report Type: 
  Country: None (occurrence: None)
  Receive Date: 20090922
  Receipt Date: 20090915
  Transmission Date: 20100115
  Serious: Yes (Hospitalization)
  Sender: FDA-Public Use
  Company Number: A0807056A

PATIENT
  Age: 59 Year
  Sex: Male
  Weight: 117.7 kg

DRUGS (8)
  1. AVANDIA [Suspect]
     Indication: DIABETES MELLITUS
     Dosage: 8MG PER DAY
     Route: 048
     Dates: start: 20030101, end: 20070101
  2. BEXTRA [Concomitant]
  3. GLUCOPHAGE [Concomitant]
  4. LIPITOR [Concomitant]
  5. AMBIEN [Concomitant]
  6. HYZAAR [Concomitant]
  7. PROVENTIL-HFA [Concomitant]
  8. ZYRTEC [Concomitant]

REACTIONS (1)
  - MYOCARDIAL INFARCTION [None]
